FAERS Safety Report 16656893 (Version 2)
Quarter: 2022Q1

REPORT INFORMATION
  Report Type: Report from Study
  Country: NL (occurrence: NL)
  Receive Date: 20190801
  Receipt Date: 20220118
  Transmission Date: 20220423
  Serious: Yes (Hospitalization)
  Sender: FDA-Public Use
  Company Number: NL-ROCHE-2104415

PATIENT

DRUGS (5)
  1. OXALIPLATIN [Suspect]
     Active Substance: OXALIPLATIN
     Indication: Colorectal cancer
     Dosage: 85 MILLIGRAM/SQ. METER, THE DATE OF LAST DOSE WAS 07/JUN/2016 PRIOR TO AE
     Route: 042
     Dates: start: 20160607
  2. BEVACIZUMAB [Suspect]
     Active Substance: BEVACIZUMAB
     Indication: Colorectal cancer
     Dosage: 5 MILLIGRAM/KILOGRAM, THE DATE OF LAST DOSE WAS 07/JUN/2016 PRIOR TO AE
     Route: 042
     Dates: start: 20160607
  3. IRINOTECAN [Suspect]
     Active Substance: IRINOTECAN
     Indication: Colorectal cancer
     Dosage: 165 MILLIGRAM/SQ. METER, THE DATE OF LAST DOSE WAS 07/JUN/2016 PRIOR TO AE
     Route: 042
     Dates: start: 20160607
  4. FLUOROURACIL [Suspect]
     Active Substance: FLUOROURACIL
     Indication: Colorectal cancer
     Dosage: 3200 MILLIGRAM/SQ. METER, THE DATE OF LAST DOSE WAS 08/JUN/2016 PRIOR TO AE
     Route: 042
     Dates: start: 20160607
  5. FLUOROURACIL [Suspect]
     Active Substance: FLUOROURACIL
     Dosage: UNK
     Dates: start: 20160608

REACTIONS (3)
  - Tumour lysis syndrome [Recovered/Resolved]
  - Diarrhoea [Recovered/Resolved]
  - Pyrexia [Recovered/Resolved]

NARRATIVE: CASE EVENT DATE: 20160611
